FAERS Safety Report 17577004 (Version 1)
Quarter: 2020Q1

REPORT INFORMATION
  Report Type: Spontaneous
  Country: US (occurrence: US)
  Receive Date: 20200319
  Receipt Date: 20200319
  Transmission Date: 20200409
  Serious: No
  Sender: FDA-Public Use
  Company Number: None

PATIENT
  Age: 38 Year
  Sex: Male
  Weight: 86 kg

DRUGS (2)
  1. LAMOTRIGINE (LAMOTRIGINE 25MG TAB) [Suspect]
     Active Substance: LAMOTRIGINE
     Indication: BIPOLAR I DISORDER
     Dates: start: 20200115, end: 20200226
  2. LAMOTRIGINE (LAMOTRIGINE 25MG TAB) [Suspect]
     Active Substance: LAMOTRIGINE
     Indication: DEPRESSION
     Dates: start: 20200115, end: 20200226

REACTIONS (3)
  - Suicidal behaviour [None]
  - Stress [None]
  - Depression [None]

NARRATIVE: CASE EVENT DATE: 20200207
